FAERS Safety Report 14926619 (Version 1)
Quarter: 2018Q2

REPORT INFORMATION
  Report Type: Spontaneous
  Country: FR (occurrence: FR)
  Receive Date: 20180523
  Receipt Date: 20180523
  Transmission Date: 20180711
  Serious: Yes (Other)
  Sender: FDA-Public Use
  Company Number: FR-MERCK KGAA-2048268

PATIENT
  Age: 63 Year
  Sex: Female

DRUGS (1)
  1. NOVOTHYROX [Suspect]
     Active Substance: LEVOTHYROXINE SODIUM
     Indication: HYPOTHYROIDISM
     Dates: end: 20171020

REACTIONS (14)
  - Aggression [None]
  - Social avoidant behaviour [None]
  - Muscle spasms [None]
  - Asthenia [None]
  - Irritability [None]
  - Suicidal ideation [None]
  - Dizziness [None]
  - Decreased appetite [None]
  - Blood bicarbonate abnormal [None]
  - Fatigue [None]
  - Pain [None]
  - Headache [None]
  - Decreased activity [None]
  - Marital problem [None]

NARRATIVE: CASE EVENT DATE: 2017
